FAERS Safety Report 5748062-3 (Version None)
Quarter: 2008Q2

REPORT INFORMATION
  Report Type: 
  Country: None (occurrence: None)
  Receive Date: 20080523
  Receipt Date: 20080513
  Transmission Date: 20081010
  Serious: Yes (Other)
  Sender: FDA-Public Use
  Company Number: IE-ELI_LILLY_AND_COMPANY-IE200802002026

PATIENT
  Age: 8 Year
  Sex: Male
  Weight: 25.8 kg

DRUGS (3)
  1. STRATTERA [Suspect]
     Indication: ATTENTION DEFICIT/HYPERACTIVITY DISORDER
     Dosage: 25 MG, UNKNOWN
     Route: 048
     Dates: start: 20040601
  2. STRATTERA [Suspect]
     Dosage: 18 MG, DAILY (1/D)
     Route: 065
     Dates: start: 20080205, end: 20080208
  3. CIRCADIN [Concomitant]
     Indication: SLEEP DISORDER
     Dosage: UNK, EVERY NIGHT
     Route: 048
     Dates: start: 20041001

REACTIONS (5)
  - AFFECT LABILITY [None]
  - EMOTIONAL DISORDER [None]
  - EXTRASYSTOLES [None]
  - FATIGUE [None]
  - HEART RATE IRREGULAR [None]
